FAERS Safety Report 7353971-8 (Version None)
Quarter: 2011Q1

REPORT INFORMATION
  Report Type: 
  Country: None (occurrence: None)
  Receive Date: 20110315
  Receipt Date: 20110302
  Transmission Date: 20110831
  Serious: Yes (Other)
  Sender: FDA-Public Use
  Company Number: PHHY2011US09980

PATIENT
  Sex: Male

DRUGS (9)
  1. ZOLOFT [Concomitant]
     Dosage: UNK
  2. KEPPRA [Concomitant]
     Dosage: UNK
  3. BACLOFEN [Concomitant]
     Dosage: UNK
  4. VITAMIN D [Concomitant]
     Dosage: 1000 IU, DAILY
  5. GILENYA [Suspect]
     Indication: MULTIPLE SCLEROSIS
     Dosage: 0.5 MG, QD
     Route: 048
     Dates: start: 20110112
  6. ADDERALL 10 [Concomitant]
     Dosage: UNK
  7. CLONAZEPAM [Concomitant]
     Dosage: UNK
  8. GABAPENTIN [Concomitant]
     Dosage: UNK
  9. FAMPRIDINE [Suspect]
     Dosage: UNK

REACTIONS (5)
  - RASH PRURITIC [None]
  - GAIT DISTURBANCE [None]
  - PRURITUS [None]
  - DIZZINESS [None]
  - SKIN DISCOLOURATION [None]
